FAERS Safety Report 21945416 (Version 2)
Quarter: 2023Q1

REPORT INFORMATION
  Report Type: Report from Study
  Country: US (occurrence: None)
  Receive Date: 20230202
  Receipt Date: 20230302
  Transmission Date: 20230417
  Serious: Yes (Hospitalization)
  Sender: FDA-Public Use
  Company Number: US-Eisai Medical Research-EC-2022-125744

PATIENT
  Age: 70 Year
  Sex: Male
  Weight: 85 kg

DRUGS (5)
  1. LENVIMA [Suspect]
     Active Substance: LENVATINIB
     Indication: Renal cancer
     Route: 048
     Dates: start: 20221005, end: 20221226
  2. LENVIMA [Suspect]
     Active Substance: LENVATINIB
     Indication: Metastases to pancreas
     Dosage: UNKNOWN DOSE; REDUCED
     Route: 048
  3. MULTAQ [Concomitant]
     Active Substance: DRONEDARONE
     Indication: Atrial fibrillation
     Route: 048
  4. AMLODIPINE [Concomitant]
     Active Substance: AMLODIPINE BESYLATE
     Indication: Hypertension
     Route: 048
  5. PREDNISONE [Concomitant]
     Active Substance: PREDNISONE
     Indication: Product used for unknown indication
     Route: 048

REACTIONS (4)
  - Platypnoea [Recovering/Resolving]
  - Diarrhoea [Not Recovered/Not Resolved]
  - Taste disorder [Unknown]
  - Oral pain [Unknown]

NARRATIVE: CASE EVENT DATE: 20221201
